FAERS Safety Report 11271921 (Version 1)
Quarter: 2015Q3

REPORT INFORMATION
  Report Type: Spontaneous
  Country: CZ (occurrence: CZ)
  Receive Date: 20150715
  Receipt Date: 20150715
  Transmission Date: 20151125
  Serious: Yes (Other)
  Sender: FDA-Public Use
  Company Number: CZ-ACCORD-032162

PATIENT
  Sex: Female

DRUGS (4)
  1. FLUOROURACIL. [Suspect]
     Active Substance: FLUOROURACIL
     Indication: RECTAL ADENOCARCINOMA
     Dosage: GIVEN 22 CYCLES FROM 17-MAY-2012 TO 18-JUL-2013.
     Dates: start: 20120517
  2. CETUXIMAB [Suspect]
     Active Substance: CETUXIMAB
     Indication: RECTAL ADENOCARCINOMA
     Dates: start: 20120517
  3. IRINOTECAN [Suspect]
     Active Substance: IRINOTECAN
     Indication: RECTAL ADENOCARCINOMA
     Dosage: GIVEN 22 CYCLES FROM 17-MAY-2012 TO 18-JUL-2013.
     Dates: start: 20120517
  4. FOLINIC ACID [Suspect]
     Active Substance: LEUCOVORIN
     Indication: RECTAL ADENOCARCINOMA
     Dosage: GIVEN 22 CYCLES FROM 17-MAY-2012 TO 18-JUL-2013.
     Dates: start: 20120517

REACTIONS (6)
  - Skin toxicity [Recovering/Resolving]
  - Paronychia [Recovering/Resolving]
  - Pain in extremity [Recovered/Resolved]
  - Diarrhoea [Unknown]
  - Folliculitis [Recovering/Resolving]
  - Dermatitis [Recovering/Resolving]
